FAERS Safety Report 5604763-9 (Version None)
Quarter: 2008Q1

REPORT INFORMATION
  Report Type: 
  Country: None (occurrence: None)
  Receive Date: 20080128
  Receipt Date: 20080124
  Transmission Date: 20080703
  Serious: Yes (Death)
  Sender: FDA-Public Use
  Company Number: GB-WYE-G00950108

PATIENT

DRUGS (1)
  1. TEMSIROLIMUS [Suspect]
     Dosage: APPROXIMATELY 6 DOSES IN TOTAL
     Route: 042

REACTIONS (1)
  - DEATH [None]
